FAERS Safety Report 24818188 (Version 1)
Quarter: 2025Q1

REPORT INFORMATION
  Report Type: Report from Study
  Country: US (occurrence: US)
  Receive Date: 20250108
  Receipt Date: 20250108
  Transmission Date: 20250409
  Serious: No
  Sender: ROCHE
  Company Number: US-ROCHE-10000173741

PATIENT
  Age: 71 Year
  Sex: Female
  Weight: 46.72 kg

DRUGS (3)
  1. OCREVUS [Suspect]
     Active Substance: OCRELIZUMAB
     Indication: Primary progressive multiple sclerosis
     Route: 042
     Dates: start: 2003
  2. OCREVUS [Suspect]
     Active Substance: OCRELIZUMAB
     Route: 042
  3. KESIMPTA [Suspect]
     Active Substance: OFATUMUMAB
     Indication: Primary progressive multiple sclerosis
     Route: 042

REACTIONS (6)
  - Respiratory syncytial virus infection [Recovered/Resolved]
  - Dysphagia [Not Recovered/Not Resolved]
  - Multiple sclerosis [Not Recovered/Not Resolved]
  - Gastrointestinal disorder [Unknown]
  - Graves^ disease [Unknown]
  - Migraine [Unknown]

NARRATIVE: CASE EVENT DATE: 20250103
